FAERS Safety Report 4711380-1 (Version None)
Quarter: 2005Q3

REPORT INFORMATION
  Report Type: 
  Country: None (occurrence: None)
  Receive Date: 20050708
  Receipt Date: 20050628
  Transmission Date: 20060218
  Serious: Yes (Other)
  Sender: FDA-Public Use
  Company Number: 2004115641

PATIENT
  Age: 64 Year
  Sex: Male
  Weight: 97.5234 kg

DRUGS (4)
  1. CELEBREX [Suspect]
     Indication: BACK PAIN
     Dosage: 400 MG (200 MG, 2 IN 1 D), ORAL
     Route: 048
     Dates: end: 20041201
  2. OXYCONTIN [Concomitant]
  3. TYLENOL [Concomitant]
  4. ALL OTHER THERAPEUTIC PRODUCTS (ALL OTHER THERAPEUTIC PRODUCTS) [Concomitant]

REACTIONS (8)
  - CEREBROVASCULAR ACCIDENT [None]
  - DRUG INEFFECTIVE [None]
  - FALL [None]
  - HEAD INJURY [None]
  - INADEQUATE ANALGESIA [None]
  - TRANSIENT ISCHAEMIC ATTACK [None]
  - VISION BLURRED [None]
  - WEIGHT DECREASED [None]
